FAERS Safety Report 17647241 (Version 2)
Quarter: 2020Q2

REPORT INFORMATION
  Report Type: Spontaneous
  Country: US (occurrence: US)
  Receive Date: 20200409
  Receipt Date: 20200415
  Transmission Date: 20200713
  Serious: Yes (Other)
  Sender: FDA-Public Use
  Company Number: US-TEVA-2020-US-1220327

PATIENT
  Age: 71 Year
  Sex: Female

DRUGS (1)
  1. DIAZEPAM-TEVA [Suspect]
     Active Substance: DIAZEPAM
     Route: 065

REACTIONS (4)
  - Paralysis [Unknown]
  - Drug ineffective [Unknown]
  - Brain injury [Unknown]
  - Central nervous system lesion [Unknown]
